FAERS Safety Report 9191662 (Version 2)
Quarter: 2013Q2

REPORT INFORMATION
  Report Type: Spontaneous
  Country: NZ (occurrence: NZ)
  Receive Date: 20130326
  Receipt Date: 20130410
  Transmission Date: 20140414
  Serious: Yes (Hospitalization, Disabling, Other)
  Sender: FDA-Public Use
  Company Number: NZ-B.I. PHARMACEUTICALS,INC./RIDGEFIELD-2013-AU-00315AU

PATIENT
  Age: 83 Year
  Sex: Female

DRUGS (5)
  1. PRADAXA [Suspect]
     Indication: ATRIAL FIBRILLATION
     Dosage: 220 MG
     Dates: start: 20121212, end: 20121219
  2. PROPANOLOL [Concomitant]
     Dosage: 80 MG
     Dates: start: 2006
  3. FELODIPINE ER [Concomitant]
     Dosage: 2.5 MG
     Dates: start: 201207
  4. CILAZAPRIL [Concomitant]
     Dosage: 2.5 MG
     Dates: start: 2009
  5. BEZAFIBRATE SR [Concomitant]
     Dosage: 400 MG
     Dates: start: 2006

REACTIONS (2)
  - Cerebrovascular accident [Not Recovered/Not Resolved]
  - Dyspepsia [Recovered/Resolved with Sequelae]
